FAERS Safety Report 5651080-7 (Version None)
Quarter: 2008Q1

REPORT INFORMATION
  Report Type: 
  Country: None (occurrence: None)
  Receive Date: 20080305
  Receipt Date: 20080305
  Transmission Date: 20080703
  Serious: Yes (Hospitalization)
  Sender: FDA-Public Use
  Company Number: B0510603A

PATIENT
  Age: 57 Year
  Sex: Male

DRUGS (3)
  1. KIVEXA [Suspect]
     Indication: HIV INFECTION
     Route: 048
  2. TELZIR [Suspect]
     Indication: HIV INFECTION
     Route: 048
  3. COMBIVIR [Suspect]
     Indication: HIV INFECTION
     Route: 048

REACTIONS (2)
  - ANAEMIA [None]
  - MYOCARDIAL INFARCTION [None]
